FAERS Safety Report 6227342-1 (Version None)
Quarter: 2009Q2

REPORT INFORMATION
  Report Type: 
  Country: None (occurrence: None)
  Receive Date: 20090612
  Receipt Date: 20090602
  Transmission Date: 20091009
  Serious: Yes (Life-Threatening, Hospitalization)
  Sender: FDA-Public Use
  Company Number: FI-JNJFOC-20090602303

PATIENT
  Age: 47 Year
  Sex: Male

DRUGS (1)
  1. REMICADE [Suspect]
     Indication: PSORIASIS
     Route: 042

REACTIONS (5)
  - ARTHRITIS BACTERIAL [None]
  - DERMATITIS EXFOLIATIVE [None]
  - MULTI-ORGAN FAILURE [None]
  - SEPSIS [None]
  - SKIN BACTERIAL INFECTION [None]
